FAERS Safety Report 20602481 (Version 4)
Quarter: 2022Q2

REPORT INFORMATION
  Report Type: Report from Study
  Country: KR (occurrence: KR)
  Receive Date: 20220316
  Receipt Date: 20220528
  Transmission Date: 20220721
  Serious: Yes (Death, Other)
  Sender: FDA-Public Use
  Company Number: KR-TAKEDA-2022TUS017533

PATIENT
  Age: 82 Year
  Sex: Female

DRUGS (10)
  1. BRIGATINIB [Suspect]
     Active Substance: BRIGATINIB
     Indication: Non-small cell lung cancer
     Dosage: 90 MILLIGRAM, QD
     Route: 048
     Dates: start: 20200827, end: 20200902
  2. BRIGATINIB [Suspect]
     Active Substance: BRIGATINIB
     Dosage: 180 MILLIGRAM, QD
     Route: 048
     Dates: start: 20200903, end: 20210814
  3. BISOPROLOL FUMARATE [Concomitant]
     Active Substance: BISOPROLOL FUMARATE
     Indication: Cardiomegaly
     Dosage: 2.5 MILLIGRAM, QD
     Route: 048
     Dates: start: 20210126, end: 20210814
  4. DIGOXIN [Concomitant]
     Active Substance: DIGOXIN
     Indication: Cardiomegaly
     Dosage: UNK UNK, QD
     Route: 048
     Dates: start: 20210423, end: 20210814
  5. NIFERON [Concomitant]
     Indication: Hypertension
     Dosage: UNK UNK, BID
     Route: 048
     Dates: start: 20190416, end: 20210814
  6. GASTER [Concomitant]
     Active Substance: FAMOTIDINE
     Indication: Chronic gastritis
     Dosage: 20 MILLIGRAM, BID
     Route: 048
     Dates: start: 20210423, end: 20210814
  7. ULTRACET [Concomitant]
     Active Substance: ACETAMINOPHEN\TRAMADOL HYDROCHLORIDE
     Indication: Lung neoplasm malignant
     Dosage: UNK UNK, BID
     Route: 048
     Dates: start: 20210423, end: 20210814
  8. NALOXONE HYDROCHLORIDE\OXYCODONE HYDROCHLORIDE [Concomitant]
     Active Substance: NALOXONE HYDROCHLORIDE\OXYCODONE HYDROCHLORIDE
     Indication: Lung neoplasm malignant
     Dosage: UNK UNK, BID
     Route: 048
     Dates: start: 20210423, end: 20210814
  9. MEGACE [Concomitant]
     Active Substance: MEGESTROL ACETATE
     Indication: Asthenia
     Dosage: UNK UNK, QD
     Route: 048
     Dates: start: 20210427, end: 20210814
  10. ENCOVER [Concomitant]
     Indication: Prophylaxis
     Dosage: UNK
     Route: 065

REACTIONS (1)
  - Shock haemorrhagic [Fatal]

NARRATIVE: CASE EVENT DATE: 20210814
